FAERS Safety Report 25460371 (Version 1)
Quarter: 2025Q2

REPORT INFORMATION
  Report Type: Spontaneous
  Country: US (occurrence: US)
  Receive Date: 20250620
  Receipt Date: 20250620
  Transmission Date: 20250717
  Serious: Yes (Other)
  Sender: MYLAN
  Company Number: US-MYLANLABS-2025M1050808

PATIENT
  Age: 29 Year
  Sex: Female

DRUGS (30)
  1. FENTANYL [Suspect]
     Active Substance: FENTANYL
     Indication: Analgesic therapy
  2. FENTANYL [Suspect]
     Active Substance: FENTANYL
     Route: 037
  3. FENTANYL [Suspect]
     Active Substance: FENTANYL
     Route: 037
  4. FENTANYL [Suspect]
     Active Substance: FENTANYL
  5. FENTANYL [Suspect]
     Active Substance: FENTANYL
     Indication: Epidural analgesia
  6. FENTANYL [Suspect]
     Active Substance: FENTANYL
     Route: 008
  7. FENTANYL [Suspect]
     Active Substance: FENTANYL
     Route: 008
  8. FENTANYL [Suspect]
     Active Substance: FENTANYL
  9. METHOTREXATE [Suspect]
     Active Substance: METHOTREXATE
     Indication: Non-Hodgkin^s lymphoma metastatic
  10. METHOTREXATE [Suspect]
     Active Substance: METHOTREXATE
     Route: 037
  11. METHOTREXATE [Suspect]
     Active Substance: METHOTREXATE
     Route: 037
  12. METHOTREXATE [Suspect]
     Active Substance: METHOTREXATE
  13. BUPIVACAINE [Suspect]
     Active Substance: BUPIVACAINE
     Indication: Epidural analgesia
  14. BUPIVACAINE [Suspect]
     Active Substance: BUPIVACAINE
     Route: 008
  15. BUPIVACAINE [Suspect]
     Active Substance: BUPIVACAINE
     Route: 008
  16. BUPIVACAINE [Suspect]
     Active Substance: BUPIVACAINE
  17. BUPIVACAINE [Suspect]
     Active Substance: BUPIVACAINE
     Indication: Epidural analgesia
  18. BUPIVACAINE [Suspect]
     Active Substance: BUPIVACAINE
     Route: 008
  19. BUPIVACAINE [Suspect]
     Active Substance: BUPIVACAINE
     Route: 008
  20. BUPIVACAINE [Suspect]
     Active Substance: BUPIVACAINE
  21. BUPIVACAINE [Suspect]
     Active Substance: BUPIVACAINE
     Indication: Epidural analgesia
  22. BUPIVACAINE [Suspect]
     Active Substance: BUPIVACAINE
     Route: 008
  23. BUPIVACAINE [Suspect]
     Active Substance: BUPIVACAINE
     Route: 008
  24. BUPIVACAINE [Suspect]
     Active Substance: BUPIVACAINE
  25. BUPIVACAINE [Suspect]
     Active Substance: BUPIVACAINE
     Indication: Analgesic therapy
     Route: 037
  26. BUPIVACAINE [Suspect]
     Active Substance: BUPIVACAINE
  27. CYTARABINE [Suspect]
     Active Substance: CYTARABINE
     Indication: Non-Hodgkin^s lymphoma metastatic
  28. CYTARABINE [Suspect]
     Active Substance: CYTARABINE
     Route: 037
  29. CYTARABINE [Suspect]
     Active Substance: CYTARABINE
     Route: 037
  30. CYTARABINE [Suspect]
     Active Substance: CYTARABINE

REACTIONS (2)
  - Drug ineffective [Unknown]
  - Maternal exposure during pregnancy [Recovered/Resolved]
